FAERS Safety Report 21924193 (Version 1)
Quarter: 2023Q1

REPORT INFORMATION
  Report Type: Spontaneous
  Country: DE (occurrence: DE)
  Receive Date: 20230130
  Receipt Date: 20230130
  Transmission Date: 20230417
  Serious: Yes (Other)
  Sender: FDA-Public Use
  Company Number: None

PATIENT
  Age: 67 Year
  Sex: Female
  Weight: 53 kg

DRUGS (8)
  1. IRINOTECAN [Suspect]
     Active Substance: IRINOTECAN
     Indication: Product used for unknown indication
     Route: 042
     Dates: start: 20221220
  2. FLUOROURACIL [Concomitant]
     Active Substance: FLUOROURACIL
     Indication: Product used for unknown indication
     Route: 042
     Dates: start: 20221220, end: 20221222
  3. APREPITANT [Concomitant]
     Active Substance: APREPITANT
     Indication: Product used for unknown indication
     Route: 048
     Dates: start: 20221220
  4. APREPITANT [Concomitant]
     Active Substance: APREPITANT
     Route: 048
     Dates: start: 20221221, end: 20221222
  5. LEUCOVORIN CALCIUM [Concomitant]
     Active Substance: LEUCOVORIN CALCIUM
     Indication: Product used for unknown indication
     Route: 042
     Dates: start: 20221220
  6. GRANISETRON [Concomitant]
     Active Substance: GRANISETRON
     Indication: Product used for unknown indication
     Dosage: UNKNOWN
     Route: 042
     Dates: start: 20221220
  7. OXALIPLATIN [Concomitant]
     Active Substance: OXALIPLATIN
     Indication: Product used for unknown indication
     Route: 042
     Dates: start: 20221220
  8. DEXAMETHASONE [Concomitant]
     Active Substance: DEXAMETHASONE
     Indication: Product used for unknown indication
     Dosage: UNKNOWN
     Route: 042
     Dates: start: 20221220

REACTIONS (2)
  - Language disorder [Recovered/Resolved]
  - Cholinergic syndrome [Recovered/Resolved]

NARRATIVE: CASE EVENT DATE: 20221220
